FAERS Safety Report 14273566 (Version 1)
Quarter: 2017Q4

REPORT INFORMATION
  Report Type: Spontaneous
  Country: AU (occurrence: AU)
  Receive Date: 20171212
  Receipt Date: 20171212
  Transmission Date: 20180321
  Serious: Yes (Hospitalization)
  Sender: FDA-Public Use
  Company Number: AU-ELI_LILLY_AND_COMPANY-AU201712004354

PATIENT
  Age: 34 Year
  Sex: Female

DRUGS (5)
  1. ERBITUX [Suspect]
     Active Substance: CETUXIMAB
     Indication: COLORECTAL CANCER METASTATIC
     Dosage: 690 MG, UNKNOWN
     Route: 065
     Dates: start: 201608
  2. ERBITUX [Suspect]
     Active Substance: CETUXIMAB
     Dosage: 435 MG, WEEKLY (1/W)
     Route: 065
     Dates: start: 201608, end: 201610
  3. FOLINIC ACID [Concomitant]
     Active Substance: LEUCOVORIN
     Indication: COLORECTAL CANCER METASTATIC
     Dosage: UNK UNK, UNKNOWN
     Route: 065
     Dates: start: 201606
  4. FLUOROURACIL. [Concomitant]
     Active Substance: FLUOROURACIL
     Indication: COLORECTAL CANCER METASTATIC
     Dosage: UNK UNK, UNKNOWN
     Route: 065
     Dates: start: 201606
  5. OXALIPLATIN. [Concomitant]
     Active Substance: OXALIPLATIN
     Indication: COLORECTAL CANCER METASTATIC
     Dosage: UNK, MONTHLY (1/M)
     Route: 065
     Dates: start: 201606, end: 201610

REACTIONS (2)
  - Skin toxicity [Unknown]
  - Pyrexia [Unknown]

NARRATIVE: CASE EVENT DATE: 201608
